FAERS Safety Report 13099773 (Version 2)
Quarter: 2017Q1

REPORT INFORMATION
  Report Type: Spontaneous
  Country: US (occurrence: US)
  Receive Date: 20170110
  Receipt Date: 20170309
  Transmission Date: 20170428
  Serious: Yes (Hospitalization)
  Sender: FDA-Public Use
  Company Number: US-BEH-2017076912

PATIENT
  Age: 12 Year
  Sex: Male

DRUGS (1)
  1. STIMATE [Suspect]
     Active Substance: DESMOPRESSIN ACETATE
     Indication: PLATELET DISORDER
     Dosage: 1.5 MG, PRN
     Route: 045
     Dates: start: 20160822

REACTIONS (2)
  - Nasal cavity packing [Unknown]
  - Epistaxis [Unknown]

NARRATIVE: CASE EVENT DATE: 20161020
